FAERS Safety Report 14947906 (Version 1)
Quarter: 2018Q2

REPORT INFORMATION
  Report Type: Spontaneous
  Country: CA (occurrence: CA)
  Receive Date: 20180529
  Receipt Date: 20180529
  Transmission Date: 20180711
  Serious: Yes (Death)
  Sender: FDA-Public Use
  Company Number: CA-CELLTRION INC.-2018CA020060

PATIENT

DRUGS (3)
  1. PREDNISONE. [Concomitant]
     Active Substance: PREDNISONE
     Dosage: UNK
     Dates: start: 2014
  2. INFLECTRA [Suspect]
     Active Substance: INFLIXIMAB-DYYB
     Indication: CROHN^S DISEASE
     Dosage: 300 MG, CYCLIC (EVERY 2, 6 WEEKS, THEN EVERY 8 WEEKS); INTRAVENOUS
     Route: 042
     Dates: start: 20170508, end: 20171011
  3. INFLECTRA [Suspect]
     Active Substance: INFLIXIMAB-DYYB
     Dosage: 500 MG, CYCLIC (EVERY 8 WEEKS)
     Route: 042
     Dates: start: 20171213, end: 20180404

REACTIONS (2)
  - Haemorrhage [Fatal]
  - Abdominal pain [Fatal]

NARRATIVE: CASE EVENT DATE: 20180511
